FAERS Safety Report 4269019-8 (Version None)
Quarter: 2004Q1

REPORT INFORMATION
  Report Type: 
  Country: None (occurrence: None)
  Receive Date: 20040108
  Receipt Date: 20031230
  Transmission Date: 20041129
  Serious: Yes (Death)
  Sender: FDA-Public Use
  Company Number: 163-20785-03120011

PATIENT
  Age: 86 Year
  Sex: Female

DRUGS (1)
  1. THALOMID [Suspect]
     Indication: MYELODYSPLASTIC SYNDROME
     Dosage: 200 MG, INTERMITTENTLY, ORAL
     Route: 048
     Dates: start: 20030501, end: 20031001

REACTIONS (1)
  - PNEUMONIA [None]
